FAERS Safety Report 16479773 (Version 3)
Quarter: 2020Q2

REPORT INFORMATION
  Report Type: Report from Study
  Country: US (occurrence: US)
  Receive Date: 20190626
  Receipt Date: 20200513
  Transmission Date: 20200713
  Serious: Yes (Death, Hospitalization)
  Sender: FDA-Public Use
  Company Number: US-ACTELION-A-NJ2018-179070

PATIENT
  Age: 80 Year
  Sex: Male

DRUGS (20)
  1. METFORMIN [Concomitant]
     Active Substance: METFORMIN HYDROCHLORIDE
     Dosage: 1000 MG, BID
  2. ATORVASTATIN [Concomitant]
     Active Substance: ATORVASTATIN
     Dosage: 10 MG, QD
  3. JANUVIA [Concomitant]
     Active Substance: SITAGLIPTIN PHOSPHATE
     Dosage: 50 MG, QD
  4. MULTIVITAMIN [Concomitant]
     Active Substance: VITAMINS
     Dosage: UNK
  5. FUROSEMIDE. [Concomitant]
     Active Substance: FUROSEMIDE
     Dosage: 80 MG, QD
  6. OPSUMIT [Suspect]
     Active Substance: MACITENTAN
     Indication: PULMONARY ARTERIAL HYPERTENSION
     Dosage: 10 MG, QD
     Route: 048
     Dates: start: 20180829
  7. VITAMIN D3 [Concomitant]
     Active Substance: CHOLECALCIFEROL
     Dosage: 50 MCG/2000 IU
  8. IRBESARTAN. [Concomitant]
     Active Substance: IRBESARTAN
     Dosage: 150 MG, QD
  9. BABY ASPIRIN [Concomitant]
     Active Substance: ASPIRIN
     Dosage: 81 MG, QD
  10. SPIRONOLACTONE. [Concomitant]
     Active Substance: SPIRONOLACTONE
     Dosage: 25 MG, QD
  11. ELIQUIS [Concomitant]
     Active Substance: APIXABAN
  12. FAMOTIDINE. [Concomitant]
     Active Substance: FAMOTIDINE
     Dosage: 40 MG, QD
  13. PROAIR HFA [Concomitant]
     Active Substance: ALBUTEROL SULFATE
     Dosage: 2 PUFF, PRN
     Route: 055
  14. FISH OIL [Concomitant]
     Active Substance: FISH OIL
     Dosage: 2000 MG, QD
  15. CRANBERRY. [Concomitant]
     Active Substance: CRANBERRY
     Dosage: 1500 MG, QD
  16. ALBUTEROL. [Concomitant]
     Active Substance: ALBUTEROL
     Dosage: 1 AMPULE, TID
     Route: 055
  17. FINASTERIDE. [Concomitant]
     Active Substance: FINASTERIDE
     Dosage: 5 MG, QD
  18. MYRBETRIQ [Concomitant]
     Active Substance: MIRABEGRON
     Dosage: 50 MG, QD
  19. OFEV [Concomitant]
     Active Substance: NINTEDANIB
     Dosage: 150 MG, BID
  20. SILDENAFIL. [Concomitant]
     Active Substance: SILDENAFIL
     Dosage: 20 MG, BID

REACTIONS (12)
  - Blood glucose increased [Unknown]
  - Condition aggravated [Not Recovered/Not Resolved]
  - Renal disorder [Unknown]
  - Product dose omission [Unknown]
  - Death [Fatal]
  - Blood potassium increased [Unknown]
  - Therapeutic product effect incomplete [Not Recovered/Not Resolved]
  - Self-medication [Unknown]
  - Fluid retention [Unknown]
  - Arrhythmia [Unknown]
  - Dyspnoea [Not Recovered/Not Resolved]
  - Dyspnoea exertional [Not Recovered/Not Resolved]

NARRATIVE: CASE EVENT DATE: 201809
